FAERS Safety Report 5087626-X (Version None)
Quarter: 2006Q3

REPORT INFORMATION
  Report Type: 
  Country: None (occurrence: None)
  Receive Date: 20060823
  Receipt Date: 20060823
  Transmission Date: 20061208
  Serious: No
  Sender: FDA-Public Use
  Company Number: None

PATIENT
  Sex: Female
  Weight: 81.6475 kg

DRUGS (1)
  1. FLUCONAZOLE [Suspect]
     Indication: VULVOVAGINAL MYCOTIC INFECTION
     Dosage: ONE TABLET    DAILY X 14 DAYS   PO
     Route: 048
     Dates: start: 20060707, end: 20060717

REACTIONS (4)
  - ASTHENIA [None]
  - FAECES DISCOLOURED [None]
  - FATIGUE [None]
  - HAEMORRHAGE [None]
